FAERS Safety Report 9436789 (Version 1)
Quarter: 2013Q3

REPORT INFORMATION
  Report Type: Spontaneous
  Country: FR (occurrence: FR)
  Receive Date: 20130802
  Receipt Date: 20130802
  Transmission Date: 20140515
  Serious: Yes (Hospitalization)
  Sender: FDA-Public Use
  Company Number: FR-JNJFOC-20130717393

PATIENT
  Age: 26 Year
  Sex: Female

DRUGS (3)
  1. REMICADE [Suspect]
     Indication: COLITIS ULCERATIVE
     Route: 042
  2. REMICADE [Suspect]
     Indication: COLITIS ULCERATIVE
     Route: 042
  3. IMUREL [Concomitant]
     Route: 065

REACTIONS (4)
  - Joint swelling [Unknown]
  - Abdominal pain [Unknown]
  - Arthralgia [Unknown]
  - Drug effect decreased [Unknown]
